FAERS Safety Report 7885050-5 (Version None)
Quarter: 2011Q4

REPORT INFORMATION
  Report Type: 
  Country: None (occurrence: None)
  Receive Date: 20111102
  Receipt Date: 20111026
  Transmission Date: 20120403
  Serious: Yes (Hospitalization)
  Sender: FDA-Public Use
  Company Number: CA-ROCHE-1003690

PATIENT
  Age: 50 Year
  Sex: Female

DRUGS (3)
  1. ACTEMRA [Suspect]
     Indication: RHEUMATOID ARTHRITIS
     Route: 042
     Dates: start: 20110323
  2. ACTEMRA [Suspect]
     Indication: RHEUMATOID ARTHRITIS
     Dosage: DOSE HELD
     Route: 042
     Dates: start: 20110915
  3. ACTEMRA [Suspect]
     Route: 058
     Dates: start: 20110323

REACTIONS (1)
  - SPHINCTER OF ODDI DYSFUNCTION [None]
